FAERS Safety Report 18693958 (Version 1)
Quarter: 2021Q1

REPORT INFORMATION
  Report Type: Spontaneous
  Country: DK (occurrence: DK)
  Receive Date: 20210104
  Receipt Date: 20210104
  Transmission Date: 20210419
  Serious: Yes (Other)
  Sender: FDA-Public Use
  Company Number: NVSC2020DK343911

PATIENT
  Age: 62 Year
  Sex: Male
  Weight: 86 kg

DRUGS (2)
  1. MYFORTIC [Suspect]
     Active Substance: MYCOPHENOLATE SODIUM
     Indication: PROPHYLAXIS AGAINST TRANSPLANT REJECTION
     Dosage: 720 MG, QD (STRENGTH: 360 MG)
     Route: 048
     Dates: start: 20201005
  2. MYFORTIC [Suspect]
     Active Substance: MYCOPHENOLATE SODIUM
     Dosage: 360 MG, QD (STRENGTH: 180 MG)
     Route: 048
     Dates: start: 20201005

REACTIONS (3)
  - Vomiting [Recovered/Resolved with Sequelae]
  - Diarrhoea [Recovering/Resolving]
  - Renal impairment [Not Recovered/Not Resolved]

NARRATIVE: CASE EVENT DATE: 20201205
